FAERS Safety Report 19364359 (Version 1)
Quarter: 2021Q2

REPORT INFORMATION
  Report Type: Spontaneous
  Country: US (occurrence: US)
  Receive Date: 20210602
  Receipt Date: 20210602
  Transmission Date: 20210717
  Serious: Yes (Other)
  Sender: FDA-Public Use
  Company Number: None

PATIENT
  Age: 79 Year
  Sex: Male
  Weight: 90 kg

DRUGS (10)
  1. METOPROLOL. [Concomitant]
     Active Substance: METOPROLOL
  2. VITAMIN D2 [Concomitant]
     Active Substance: ERGOCALCIFEROL
  3. DOCUSATE SODIUM 100MG [Concomitant]
     Active Substance: DOCUSATE SODIUM
  4. GLIMEPRIDE 2MG [Concomitant]
     Active Substance: GLIMEPIRIDE
  5. C?PAP [Concomitant]
  6. METFORMIN 1000MG 2 DAY [Concomitant]
  7. VIL D3 1000MG. [Concomitant]
  8. LISINOPRIL. [Concomitant]
     Active Substance: LISINOPRIL
  9. DONEPEZIL. [Suspect]
     Active Substance: DONEPEZIL
     Indication: DEMENTIA
     Route: 048
     Dates: start: 20210421, end: 20210525
  10. ASPIRIN. [Concomitant]
     Active Substance: ASPIRIN

REACTIONS (2)
  - Malaise [None]
  - Agitation [None]

NARRATIVE: CASE EVENT DATE: 20210525
